FAERS Safety Report 10045905 (Version 1)
Quarter: 2014Q1

REPORT INFORMATION
  Report Type: Spontaneous
  Country: US (occurrence: US)
  Receive Date: 20140329
  Receipt Date: 20140329
  Transmission Date: 20141002
  Serious: No
  Sender: FDA-Public Use
  Company Number: US-009507513-1403USA011849

PATIENT
  Age: 23 Year
  Sex: Female
  Weight: 58.5 kg

DRUGS (1)
  1. NEXPLANON [Suspect]
     Indication: CONTRACEPTION
     Dosage: UNK
     Dates: start: 20130821

REACTIONS (4)
  - Headache [Unknown]
  - Abdominal distension [Unknown]
  - Abdominal pain [Unknown]
  - Muscle spasms [Unknown]
